FAERS Safety Report 25776919 (Version 1)
Quarter: 2025Q3

REPORT INFORMATION
  Report Type: Spontaneous
  Country: US (occurrence: US)
  Receive Date: 20250909
  Receipt Date: 20250909
  Transmission Date: 20251021
  Serious: No
  Sender: DOMPE FARMACEUTICI
  Company Number: US-FARMAPROD-202503-1040

PATIENT
  Sex: Female

DRUGS (33)
  1. OXERVATE [Suspect]
     Active Substance: CENEGERMIN-BKBJ
     Indication: Neurotrophic keratopathy
     Route: 047
     Dates: start: 20250204
  2. DAILY MULTIVITAMIN WITH D3 [Concomitant]
  3. ALBUTEROL SULFATE [Concomitant]
     Active Substance: ALBUTEROL SULFATE
  4. LORATADINE [Concomitant]
     Active Substance: LORATADINE
  5. VITAMIN D3 [Concomitant]
     Active Substance: CHOLECALCIFEROL
  6. CALCIUM 600-VIT D3 [Concomitant]
  7. OFLOXACIN [Concomitant]
     Active Substance: OFLOXACIN
  8. IBUPROFEN [Concomitant]
     Active Substance: IBUPROFEN
  9. CHOLECALCIFEROL [Concomitant]
     Active Substance: CHOLECALCIFEROL
  10. FERROUS SULFATE [Concomitant]
     Active Substance: FERROUS SULFATE
  11. OMEPRAZOLE [Concomitant]
     Active Substance: OMEPRAZOLE
  12. CALCIUM [Concomitant]
     Active Substance: CALCIUM
  13. ZOCOR [Concomitant]
     Active Substance: SIMVASTATIN
  14. METFORMIN HYDROCHLORIDE [Concomitant]
     Active Substance: METFORMIN HYDROCHLORIDE
  15. PREDNISONE [Concomitant]
     Active Substance: PREDNISONE
  16. MONTELUKAST SODIUM [Concomitant]
     Active Substance: MONTELUKAST SODIUM
  17. CYCLOSPORINE [Concomitant]
     Active Substance: CYCLOSPORINE
  18. METFORMIN HYDROCHLORIDE [Concomitant]
     Active Substance: METFORMIN HYDROCHLORIDE
  19. NEURONTIN [Concomitant]
     Active Substance: GABAPENTIN
  20. REFRESH TEARS [Concomitant]
     Active Substance: CARBOXYMETHYLCELLULOSE SODIUM
  21. OXYBUTYNIN CHLORIDE [Concomitant]
     Active Substance: OXYBUTYNIN CHLORIDE
  22. HYDROCORTISONE\NEOMYCIN\POLYMYXIN [Concomitant]
     Active Substance: HYDROCORTISONE\NEOMYCIN\POLYMYXIN
  23. PROMETHAZINE-DM [Concomitant]
  24. DOCUSATE SODIUM [Concomitant]
     Active Substance: DOCUSATE SODIUM
  25. VITAMIN B12 [Concomitant]
     Active Substance: CYANOCOBALAMIN
  26. ALPHAGAN P [Concomitant]
     Active Substance: BRIMONIDINE TARTRATE
  27. LUMIGAN [Concomitant]
     Active Substance: BIMATOPROST
  28. MAGNESIUM OXIDE [Concomitant]
     Active Substance: MAGNESIUM OXIDE
  29. FAMOTIDINE [Concomitant]
     Active Substance: FAMOTIDINE
  30. LISINOPRIL [Concomitant]
     Active Substance: LISINOPRIL
  31. OXYBUTYNIN CHLORIDE [Concomitant]
     Active Substance: OXYBUTYNIN CHLORIDE
  32. LEVOCETIRIZINE DIHYDROCHLORIDE [Concomitant]
     Active Substance: LEVOCETIRIZINE DIHYDROCHLORIDE
  33. DICLOFENAC SODIUM [Concomitant]
     Active Substance: DICLOFENAC SODIUM

REACTIONS (5)
  - Eye irritation [Unknown]
  - Eye irritation [Unknown]
  - Product dose omission issue [Unknown]
  - Eyelid pain [Unknown]
  - Eyelid irritation [Unknown]
